FAERS Safety Report 19074556 (Version 1)
Quarter: 2021Q1

REPORT INFORMATION
  Report Type: Spontaneous
  Country: US (occurrence: US)
  Receive Date: 20210330
  Receipt Date: 20210330
  Transmission Date: 20210420
  Serious: No
  Sender: FDA-Public Use
  Company Number: US-ROCHE-2679605

PATIENT
  Sex: Female

DRUGS (1)
  1. ERIVEDGE [Suspect]
     Active Substance: VISMODEGIB
     Indication: BASAL CELL CARCINOMA
     Dosage: BY MOUTH
     Route: 048
     Dates: start: 20200702

REACTIONS (4)
  - Muscle spasms [Unknown]
  - Weight decreased [Unknown]
  - Dizziness [Unknown]
  - Alopecia [Unknown]
